FAERS Safety Report 4829955-8 (Version None)
Quarter: 2005Q4

REPORT INFORMATION
  Report Type: 
  Country: None (occurrence: None)
  Receive Date: 20051115
  Receipt Date: 20051115
  Transmission Date: 20060501
  Serious: Yes (Life-Threatening, Hospitalization)
  Sender: FDA-Public Use
  Company Number: None

PATIENT
  Age: 62 Year
  Sex: Male
  Weight: 82.1011 kg

DRUGS (10)
  1. TACROLIMUS 1MG CAPSULE [Suspect]
     Indication: LIVER TRANSPLANT
     Dosage: 3MG BID
     Dates: start: 20050701
  2. MYCOPHENOLATE MOFETIL [Concomitant]
  3. PREDNISONE [Concomitant]
  4. NYSTATIN [Concomitant]
  5. INSULIN REGULAR SS [Concomitant]
  6. GLIPIZIDE [Concomitant]
  7. FUROSEMIDE [Concomitant]
  8. SULFATRIM-DS [Concomitant]
  9. APAP WITH CODEINE [Concomitant]
  10. RANITIDINE [Concomitant]

REACTIONS (3)
  - DRUG LEVEL INCREASED [None]
  - PANCYTOPENIA [None]
  - RENAL FAILURE ACUTE [None]
